FAERS Safety Report 15013125 (Version 1)
Quarter: 2018Q2

REPORT INFORMATION
  Report Type: Report from Study
  Country: GB (occurrence: GB)
  Receive Date: 20180614
  Receipt Date: 20180614
  Transmission Date: 20180711
  Serious: Yes (Hospitalization)
  Sender: FDA-Public Use
  Company Number: GB-SHIRE-GB201821442

PATIENT

DRUGS (2)
  1. IDURSULFASE [Suspect]
     Active Substance: IDURSULFASE
     Dosage: 0.37 MG/KG AND 0.56 MG/KG ALTERNATIVELY, 1X/WEEK
     Route: 065
     Dates: start: 20140916, end: 20170313
  2. IDURSULFASE [Suspect]
     Active Substance: IDURSULFASE
     Indication: MUCOPOLYSACCHARIDOSIS II
     Dosage: 0.41 MG/KG, 1X/WEEK
     Route: 065
     Dates: start: 20070815, end: 20140915

REACTIONS (1)
  - Adenoidectomy [Unknown]

NARRATIVE: CASE EVENT DATE: 20150817
